FAERS Safety Report 18639935 (Version 1)
Quarter: 2020Q4

REPORT INFORMATION
  Report Type: Spontaneous
  Country: US (occurrence: US)
  Receive Date: 20201220
  Receipt Date: 20201220
  Transmission Date: 20210114
  Serious: No
  Sender: FDA-Public Use
  Company Number: US-PACIRA-202000023

PATIENT
  Sex: Female

DRUGS (2)
  1. BUPIVACAINE. [Suspect]
     Active Substance: BUPIVACAINE
     Indication: NERVE BLOCK
     Dosage: 10 CC OF 0.5% BUPIVACAINE ADMIXED WITH EXPAREL 133 MG
     Route: 065
  2. EXPAREL [Suspect]
     Active Substance: BUPIVACAINE
     Indication: NERVE BLOCK
     Dosage: 133MG, ONE TIME DOSE, ADMIXED WITH 10CC OF 0.5% BUPIVACAINE
     Route: 065

REACTIONS (4)
  - Therapeutic product effect prolonged [Unknown]
  - Hypoaesthesia [Unknown]
  - Sensorimotor disorder [Unknown]
  - Paraesthesia [Unknown]
